FAERS Safety Report 7671477-3 (Version None)
Quarter: 2011Q3

REPORT INFORMATION
  Report Type: 
  Country: None (occurrence: None)
  Receive Date: 20110809
  Receipt Date: 20110802
  Transmission Date: 20111222
  Serious: Yes (Hospitalization, Other)
  Sender: FDA-Public Use
  Company Number: US-BAYER-201013536NA

PATIENT
  Age: 21 Year
  Sex: Female
  Weight: 72.562 kg

DRUGS (4)
  1. YAZ [Suspect]
     Indication: PREMENSTRUAL SYNDROME
  2. NSAID'S [Concomitant]
  3. YAZ [Suspect]
     Indication: CONTRACEPTION
     Dosage: UNK UNK, UNK
     Route: 048
     Dates: start: 20070901, end: 20071201
  4. YAZ [Suspect]

REACTIONS (5)
  - CHOLECYSTITIS CHRONIC [None]
  - ABDOMINAL PAIN UPPER [None]
  - GALLBLADDER DISORDER [None]
  - CHOLELITHIASIS [None]
  - CHEST PAIN [None]
